FAERS Safety Report 8293945-6 (Version None)
Quarter: 2012Q2

REPORT INFORMATION
  Report Type: 
  Country: None (occurrence: None)
  Receive Date: 20120418
  Receipt Date: 20120416
  Transmission Date: 20120825
  Serious: No
  Sender: FDA-Public Use
  Company Number: US-B.I. PHARMACEUTICALS,INC./RIDGEFIELD-2012-BP-07137BP

PATIENT
  Sex: Female

DRUGS (10)
  1. PRADAXA [Suspect]
     Indication: ATRIAL FIBRILLATION
     Dosage: 300 MG
     Route: 048
     Dates: start: 20120201
  2. DIGOXIN [Suspect]
     Indication: ATRIAL FIBRILLATION
     Dosage: 0.25 MG
     Route: 048
     Dates: start: 20120201
  3. SPIRONOLACTONE [Suspect]
     Indication: HYPERTENSION
     Dosage: 200 MG
     Route: 048
     Dates: start: 20120201
  4. LOSARTAN POTASSIUM AND HYDROCHLOROTHIAZIDE [Concomitant]
     Indication: HYPERTENSION
     Route: 048
  5. XANAX [Concomitant]
     Indication: ANXIETY
  6. PANTOPRAZOLE [Concomitant]
     Indication: DYSPEPSIA
     Dosage: 40 MG
     Route: 048
  7. POTASSIUM CHLORIDE [Suspect]
     Indication: PROPHYLAXIS
     Dosage: 20 MEQ
     Route: 048
     Dates: start: 20120201
  8. FUROSEMIDE [Concomitant]
     Indication: FLUID RETENTION
     Dosage: 40 MG
     Route: 048
  9. XANAX [Concomitant]
     Indication: PANIC ATTACK
  10. FLECAINIDE ACETATE [Suspect]
     Indication: ATRIAL FIBRILLATION
     Dosage: 100 MG
     Route: 048
     Dates: start: 20120201

REACTIONS (5)
  - ASTHENIA [None]
  - WEIGHT DECREASED [None]
  - LOWER RESPIRATORY TRACT INFECTION [None]
  - NAUSEA [None]
  - DIARRHOEA [None]
